FAERS Safety Report 5803908-5 (Version None)
Quarter: 2008Q3

REPORT INFORMATION
  Report Type: 
  Country: None (occurrence: None)
  Receive Date: 20080708
  Receipt Date: 20080626
  Transmission Date: 20090109
  Serious: Yes (Other)
  Sender: FDA-Public Use
  Company Number: GB-PFIZER INC-2008054316

PATIENT
  Age: 38 Year
  Sex: Female
  Weight: 78 kg

DRUGS (1)
  1. CHANTIX [Suspect]
     Indication: SMOKING CESSATION THERAPY
     Route: 048
     Dates: start: 20080603, end: 20080611

REACTIONS (4)
  - CHEST PAIN [None]
  - HYPERHIDROSIS [None]
  - NAUSEA [None]
  - PALLOR [None]
